FAERS Safety Report 10198841 (Version 1)
Quarter: 2014Q2

REPORT INFORMATION
  Report Type: Spontaneous
  Country: US (occurrence: US)
  Receive Date: 20140527
  Receipt Date: 20140527
  Transmission Date: 20141212
  Serious: No
  Sender: FDA-Public Use
  Company Number: US-NOVEN-13US007737

PATIENT
  Age: 14 Year
  Sex: Female
  Weight: 41.72 kg

DRUGS (5)
  1. DAYTRANA [Suspect]
     Indication: ATTENTION DEFICIT/HYPERACTIVITY DISORDER
     Dosage: 10 MG, UNK
     Route: 062
     Dates: start: 201208
  2. DAYTRANA [Suspect]
     Dosage: 15 MG, UNK
     Route: 062
  3. DAYTRANA [Suspect]
     Dosage: 20 MG, UNK
     Route: 062
     Dates: end: 2013
  4. DAYTRANA [Suspect]
     Dosage: 1/2 X 20MG , UNK
     Route: 062
     Dates: start: 201308, end: 201309
  5. DAYTRANA [Suspect]
     Dosage: 20 MG, UNK
     Route: 062
     Dates: start: 201309

REACTIONS (6)
  - Disturbance in attention [Recovered/Resolved]
  - Tremor [Not Recovered/Not Resolved]
  - Decreased appetite [Not Recovered/Not Resolved]
  - Weight decreased [Not Recovered/Not Resolved]
  - Wrong technique in drug usage process [Recovered/Resolved]
  - Drug prescribing error [Recovered/Resolved]
